FAERS Safety Report 5591076-7 (Version None)
Quarter: 2008Q1

REPORT INFORMATION
  Report Type: 
  Country: None (occurrence: None)
  Receive Date: 20080111
  Receipt Date: 20080111
  Transmission Date: 20080703
  Serious: Yes (Hospitalization)
  Sender: FDA-Public Use
  Company Number: None

PATIENT
  Sex: Female
  Weight: 92 kg

DRUGS (3)
  1. CYTARABINE [Suspect]
     Dosage: 1400 MG
     Dates: end: 20071221
  2. DAUNORUBICIN HCL [Suspect]
     Dosage: 540 MG
     Dates: end: 20071216
  3. ETOPOSIDE [Suspect]
     Dosage: 600 MG
     Dates: end: 20071216

REACTIONS (5)
  - AXILLARY PAIN [None]
  - HIDRADENITIS [None]
  - NEUTROPENIA [None]
  - URTICARIA [None]
  - WOUND INFECTION STAPHYLOCOCCAL [None]
